FAERS Safety Report 7757324-X (Version None)
Quarter: 2011Q3

REPORT INFORMATION
  Report Type: 
  Country: None (occurrence: None)
  Receive Date: 20110916
  Receipt Date: 20110912
  Transmission Date: 20111222
  Serious: Yes (Hospitalization)
  Sender: FDA-Public Use
  Company Number: FR-ABBOTT-11P-056-0726407-00

PATIENT
  Sex: Male
  Weight: 35 kg

DRUGS (13)
  1. LEVOCARNIL [Concomitant]
     Indication: PRODUCT USED FOR UNKNOWN INDICATION
     Route: 048
  2. NAPROXEN [Suspect]
     Route: 048
     Dates: start: 20091101, end: 20091130
  3. HEXATRIONE [Concomitant]
     Indication: ARTHRALGIA
     Route: 014
  4. CLARITHROMYCIN [Suspect]
     Indication: HELICOBACTER INFECTION
     Dosage: UNKNOWN
     Dates: start: 20110207, end: 20110207
  5. SODIUM BICARBONATE [Concomitant]
     Indication: PRODUCT USED FOR UNKNOWN INDICATION
     Route: 048
  6. ADVIL LIQUI-GELS [Suspect]
     Indication: ARTHRALGIA
     Dosage: DOSE FOR 35 KG, IDF 3 TIMES DAILY
     Route: 048
     Dates: start: 20101231, end: 20110215
  7. ESOMEPRAZOLE SODIUM [Suspect]
     Indication: GASTRIC ULCER
     Route: 048
     Dates: start: 20110207
  8. NAPROXEN [Suspect]
     Indication: ARTHRITIS
     Route: 048
     Dates: start: 20100427, end: 20101231
  9. PHOSPHONEUROS [Concomitant]
     Indication: PRODUCT USED FOR UNKNOWN INDICATION
     Route: 047
  10. VALPROIC ACID [Suspect]
     Indication: CONVULSION
     Route: 048
     Dates: start: 20101127
  11. ADVIL LIQUI-GELS [Suspect]
     Indication: ARTHRITIS
     Dosage: UNKNOWN
     Dates: start: 20090901
  12. AMOXICILLIN [Suspect]
     Indication: HELICOBACTER INFECTION
     Dosage: 1 DF
     Route: 048
     Dates: start: 20110207, end: 20110214
  13. UVESTEROL [Concomitant]
     Indication: PRODUCT USED FOR UNKNOWN INDICATION
     Dosage: 2 DF
     Route: 048
     Dates: end: 20110216

REACTIONS (1)
  - RENAL FAILURE ACUTE [None]
